FAERS Safety Report 21279278 (Version 1)
Quarter: 2022Q3

REPORT INFORMATION
  Report Type: Spontaneous
  Country: US (occurrence: US)
  Receive Date: 20220901
  Receipt Date: 20220901
  Transmission Date: 20221027
  Serious: No
  Sender: FDA-Public Use
  Company Number: US-TEVA-2022-US-2066654

PATIENT

DRUGS (1)
  1. BUPROPION [Suspect]
     Active Substance: BUPROPION
     Indication: Product used for unknown indication
     Route: 065

REACTIONS (5)
  - Abdominal discomfort [Unknown]
  - Depression [Unknown]
  - Therapeutic product effect incomplete [Unknown]
  - Product substitution issue [Unknown]
  - Migraine [Unknown]
